FAERS Safety Report 8121644 (Version 2)
Quarter: 2013Q1

REPORT INFORMATION
  Report Type: Report from Study
  Country: JP (occurrence: JP)
  Receive Date: 20110906
  Receipt Date: 20130228
  Transmission Date: 20140127
  Serious: Yes (Death, Hospitalization)
  Sender: FDA-Public Use
  Company Number: JP-GLAXOSMITHKLINE-B0744042A

PATIENT
  Age: 47 Year
  Sex: Female
  Weight: 59 kg

DRUGS (4)
  1. TYKERB [Suspect]
     Indication: BREAST CANCER
     Route: 048
     Dates: start: 20100927, end: 20110729
  2. XELODA [Suspect]
     Route: 048
     Dates: start: 20100927, end: 20110729
  3. ZITHROMAC [Concomitant]
     Route: 048
  4. SELBEX [Concomitant]
     Route: 048

REACTIONS (2)
  - Liver disorder [Unknown]
  - Death [Fatal]
